FAERS Safety Report 16751880 (Version 1)
Quarter: 2019Q3

REPORT INFORMATION
  Report Type: Spontaneous
  Country: FR (occurrence: FR)
  Receive Date: 20190828
  Receipt Date: 20190828
  Transmission Date: 20191005
  Serious: Yes (Hospitalization)
  Sender: FDA-Public Use
  Company Number: FR-TEVA-2019-FR-1097457

PATIENT
  Age: 94 Year
  Sex: Female
  Weight: 60 kg

DRUGS (9)
  1. FOSINOPRIL ALLARD 20 MG, COMPRIME [Concomitant]
     Route: 048
  2. TRINITRINE MYLAN 5 MG/24 HEURES, DISPOSITIF TRANSDERMIQUE [Concomitant]
     Active Substance: NITROGLYCERIN
     Route: 062
  3. UVEDOSE 100 000 UI, SOLUTION BUVABLE EN AMPOULE [Concomitant]
     Active Substance: CHOLECALCIFEROL
     Route: 048
  4. LEVOTHYROX 100 MICROGRAMMES, COMPRIME SECABLE [Concomitant]
     Active Substance: LEVOTHYROXINE
     Route: 048
  5. TAHOR [Concomitant]
     Active Substance: ATORVASTATIN CALCIUM
     Route: 048
  6. XARELTO [Concomitant]
     Active Substance: RIVAROXABAN
     Route: 048
  7. PARACETAMOL ALPHARMA [Concomitant]
     Route: 048
  8. AMIODARONE ACTAVIS 200 MG, COMPRIME SECABLE [Suspect]
     Active Substance: AMIODARONE
     Indication: ATRIAL FIBRILLATION
     Dosage: 200 MG/DAY EXCEPT WEEKEND
     Route: 048
     Dates: start: 201705
  9. LEVOTHYROX 75 MICROGRAMMES, COMPRIME SECABLE [Concomitant]
     Active Substance: LEVOTHYROXINE SODIUM
     Route: 048

REACTIONS (1)
  - Lung disorder [Not Recovered/Not Resolved]

NARRATIVE: CASE EVENT DATE: 20190626
